FAERS Safety Report 9537268 (Version 1)
Quarter: 2013Q3

REPORT INFORMATION
  Report Type: Spontaneous
  Country: US (occurrence: None)
  Receive Date: 20130918
  Receipt Date: 20130918
  Transmission Date: 20140515
  Serious: No
  Sender: FDA-Public Use
  Company Number: None

PATIENT
  Age: 72 Year
  Sex: Male
  Weight: 77.11 kg

DRUGS (1)
  1. CRESTOR [Suspect]
     Indication: BLOOD CHOLESTEROL ABNORMAL
     Dates: start: 20130906, end: 20130917

REACTIONS (5)
  - Neck pain [None]
  - Musculoskeletal stiffness [None]
  - Headache [None]
  - Middle insomnia [None]
  - Musculoskeletal stiffness [None]
